FAERS Safety Report 8681183 (Version 4)
Quarter: 2013Q4

REPORT INFORMATION
  Report Type: Spontaneous
  Country: US (occurrence: US)
  Receive Date: 20120725
  Receipt Date: 20131126
  Transmission Date: 20140711
  Serious: No
  Sender: FDA-Public Use
  Company Number: US-BIOGENIDEC-2012BI025834

PATIENT
  Age: 53 Year
  Sex: Female

DRUGS (2)
  1. TYSABRI [Suspect]
     Indication: MULTIPLE SCLEROSIS
     Route: 042
     Dates: start: 20120515, end: 20120716
  2. TYLENOL [Concomitant]
     Indication: PREMEDICATION
     Dates: start: 201207

REACTIONS (2)
  - Hypoaesthesia [Unknown]
  - Hypersensitivity [Recovered/Resolved]
